FAERS Safety Report 4502272-1 (Version None)
Quarter: 2004Q4

REPORT INFORMATION
  Report Type: 
  Country: None (occurrence: None)
  Receive Date: 20041116
  Receipt Date: 20041109
  Transmission Date: 20050328
  Serious: Yes (Other)
  Sender: FDA-Public Use
  Company Number: PHNU2004DE03809

PATIENT
  Age: 16 Year
  Sex: Female

DRUGS (1)
  1. TRILEPTAL [Suspect]
     Indication: EPILEPSY
     Dosage: 150 MG, ONCE/SINGLE
     Route: 048
     Dates: start: 20041108, end: 20041108

REACTIONS (14)
  - BLOOD PRESSURE DECREASED [None]
  - BODY TEMPERATURE INCREASED [None]
  - CARDIOVASCULAR DISORDER [None]
  - CHILLS [None]
  - DIPLOPIA [None]
  - DIZZINESS [None]
  - DYSPHAGIA [None]
  - ERYTHEMA [None]
  - HEADACHE [None]
  - LYMPHADENOPATHY [None]
  - MUSCLE TWITCHING [None]
  - PAIN IN EXTREMITY [None]
  - PRURITUS GENERALISED [None]
  - VISION BLURRED [None]
